FAERS Safety Report 6447045-8 (Version None)
Quarter: 2009Q4

REPORT INFORMATION
  Report Type: 
  Country: None (occurrence: None)
  Receive Date: 20091110
  Receipt Date: 20090720
  Transmission Date: 20100525
  Serious: No
  Sender: FDA-Public Use
  Company Number: 1000007600

PATIENT
  Age: 40 Year
  Sex: Female

DRUGS (11)
  1. SAVELLA [Suspect]
     Indication: FIBROMYALGIA
     Dosage: 12.5 MG (12.5 MG, 1 IN 1 D) ORAL
     Route: 048
     Dates: start: 20090601, end: 20090601
  2. SAVELLA [Suspect]
     Indication: FIBROMYALGIA
     Dosage: 100 MG (50 MG, 2 IN 1 D), ORAL
     Route: 048
     Dates: start: 20090601, end: 20090601
  3. THYROID TAB [Concomitant]
  4. FLEXERIL [Concomitant]
  5. CORTEF [Concomitant]
  6. KLONOPIN [Concomitant]
  7. WELLBUTRIN [Concomitant]
  8. VICODIN [Concomitant]
  9. HERBAL SUPPLEMENTS [Concomitant]
  10. SAVELLA [Suspect]
     Indication: FIBROMYALGIA
     Dosage: 12.5 MG (12.5 MG, 1 IN 1 D), ORAL
     Route: 048
     Dates: start: 20090718, end: 20090718
  11. TRAMADOL HCL [Suspect]
     Indication: FIBROMYALGIA
     Dosage: ORAL
     Route: 048
     Dates: end: 20090601

REACTIONS (1)
  - MIGRAINE [None]
